FAERS Safety Report 16325473 (Version 2)
Quarter: 2019Q3

REPORT INFORMATION
  Report Type: Report from Study
  Country: US (occurrence: US)
  Receive Date: 20190517
  Receipt Date: 20190725
  Transmission Date: 20191004
  Serious: Yes (Death)
  Sender: FDA-Public Use
  Company Number: US-BIOGEN-2019BI00737960

PATIENT
  Age: 71 Year
  Sex: Female

DRUGS (1)
  1. AVONEX [Suspect]
     Active Substance: INTERFERON BETA-1A
     Indication: MULTIPLE SCLEROSIS
     Dosage: INJECT 30 MCG INTO THE MUSCLE ONCE A WEEK
     Route: 030

REACTIONS (1)
  - Death [Fatal]

NARRATIVE: CASE EVENT DATE: 20190318
